FAERS Safety Report 13374429 (Version 2)
Quarter: 2017Q1

REPORT INFORMATION
  Report Type: Spontaneous
  Country: PL (occurrence: PL)
  Receive Date: 20170327
  Receipt Date: 20170328
  Transmission Date: 20170429
  Serious: Yes (Hospitalization)
  Sender: FDA-Public Use
  Company Number: PL-PFIZER INC-2017126659

PATIENT
  Age: 4 Year
  Sex: Female
  Weight: 16 kg

DRUGS (3)
  1. VINCRISTINE TEVA [Concomitant]
     Active Substance: VINCRISTINE
     Indication: ACUTE LYMPHOCYTIC LEUKAEMIA
     Dosage: 1 MG (1.5 MG/ M2), UNK
     Route: 042
     Dates: start: 20170130, end: 20170130
  2. ADRIBLASTIN [Suspect]
     Active Substance: DOXORUBICIN HYDROCHLORIDE
     Indication: ACUTE LYMPHOCYTIC LEUKAEMIA
     Dosage: 20 MG (30MG/M2), UNK
     Route: 042
     Dates: start: 20170130, end: 20170130
  3. ASPARAGINASE MEDAC [Concomitant]
     Active Substance: ASPARAGINASE
     Indication: ACUTE LYMPHOCYTIC LEUKAEMIA
     Dosage: 6600 IU (10000 MG/ M2), UNK
     Route: 042
     Dates: start: 20170130, end: 20170130

REACTIONS (3)
  - Apathy [Recovered/Resolved]
  - Somnolence [Recovered/Resolved]
  - Sinus bradycardia [Recovered/Resolved]

NARRATIVE: CASE EVENT DATE: 20170131
